FAERS Safety Report 25873745 (Version 1)
Quarter: 2025Q4

REPORT INFORMATION
  Report Type: Spontaneous
  Country: US (occurrence: US)
  Receive Date: 20251002
  Receipt Date: 20251002
  Transmission Date: 20260117
  Serious: No
  Sender: INTRA-CELLULAR THERAPIES
  Company Number: US-INTRA-CELLULAR THERAPIES, INC.-2025ICT01658

PATIENT
  Age: 64 Year
  Sex: Male

DRUGS (2)
  1. CAPLYTA [Suspect]
     Active Substance: LUMATEPERONE
     Indication: Schizophrenia
     Dosage: 42 MG, 1X/DAY
     Route: 048
     Dates: start: 2023, end: 20250815
  2. CAPLYTA [Suspect]
     Active Substance: LUMATEPERONE
     Indication: Bipolar disorder

REACTIONS (2)
  - Throat tightness [Recovering/Resolving]
  - Hypophagia [Recovering/Resolving]

NARRATIVE: CASE EVENT DATE: 20250701
